FAERS Safety Report 5953794-8 (Version None)
Quarter: 2008Q4

REPORT INFORMATION
  Report Type: 
  Country: None (occurrence: None)
  Receive Date: 20081114
  Receipt Date: 20081103
  Transmission Date: 20090506
  Serious: Yes (Other)
  Sender: FDA-Public Use
  Company Number: CA-ELI_LILLY_AND_COMPANY-CA200808005353

PATIENT
  Age: 78 Year
  Sex: Female

DRUGS (6)
  1. FORTEO [Suspect]
     Indication: OSTEOPOROSIS
     Dosage: 20 UG, DAILY (1/D)
     Route: 058
     Dates: start: 20070820
  2. ASAPHEN [Concomitant]
  3. CALCIUM WITH VITAMIN D /00944201/ [Concomitant]
  4. NOVO-ATENOL [Concomitant]
  5. PHAZYME [Concomitant]
     Dosage: UNK, AS NEEDED
  6. COZAAR [Concomitant]

REACTIONS (2)
  - BREAST CANCER [None]
  - BREAST MASS [None]
